FAERS Safety Report 6370676-0 (Version None)
Quarter: 2009Q3

REPORT INFORMATION
  Report Type: 
  Country: None (occurrence: None)
  Receive Date: 20090923
  Receipt Date: 20070607
  Transmission Date: 20100115
  Serious: Yes (Other)
  Sender: FDA-Public Use
  Company Number: US-ASTRAZENECA-2006UW25104

PATIENT
  Age: 23279 Day
  Sex: Female
  Weight: 85.7 kg

DRUGS (18)
  1. SEROQUEL [Suspect]
     Indication: ANXIETY
     Dosage: 25-100 MG
     Route: 048
     Dates: start: 19981117
  2. SEROQUEL [Suspect]
     Indication: SLEEP DISORDER
     Dosage: 25-100 MG
     Route: 048
     Dates: start: 19981117
  3. SEROQUEL [Suspect]
     Route: 048
     Dates: start: 19981101, end: 20060401
  4. SEROQUEL [Suspect]
     Route: 048
     Dates: start: 19981101, end: 20060401
  5. CLOZARIL [Concomitant]
  6. RISPERDAL [Concomitant]
  7. PERPHENAZINE [Concomitant]
  8. LIPITOR [Concomitant]
  9. RITALIN [Concomitant]
     Dosage: 5-75 MG
  10. METOPROLOL TARTRATE [Concomitant]
  11. HYDROCHLOROTHIAZIDE [Concomitant]
  12. NEXIUM [Concomitant]
     Indication: GASTROOESOPHAGEAL REFLUX DISEASE
  13. ATENOLOL [Concomitant]
     Dosage: 25-50 MG
  14. ALBUTEROL [Concomitant]
  15. TRIAZOLAM [Concomitant]
  16. KLONOPIN [Concomitant]
     Indication: PANIC DISORDER
     Dosage: 1MG THREE TO FOUR TIMES A DAY
  17. COGENTIN [Concomitant]
     Dosage: 0.5 MG 1-2 TIMES A DAY
     Route: 048
  18. XANAX [Concomitant]

REACTIONS (1)
  - PANCREATITIS [None]
